FAERS Safety Report 14093104 (Version 1)
Quarter: 2017Q4

REPORT INFORMATION
  Report Type: Report from Study
  Country: FR (occurrence: FR)
  Receive Date: 20171016
  Receipt Date: 20171016
  Transmission Date: 20180321
  Serious: Yes (Other)
  Sender: FDA-Public Use
  Company Number: FR-ROCHE-2008579

PATIENT

DRUGS (1)
  1. VEMURAFENIB. [Suspect]
     Active Substance: VEMURAFENIB
     Indication: ERDHEIM-CHESTER DISEASE
     Route: 065

REACTIONS (5)
  - Cardiac arrest [Recovered/Resolved]
  - Off label use [Unknown]
  - Electrocardiogram QT prolonged [Unknown]
  - Intentional product use issue [Unknown]
  - Torsade de pointes [Unknown]
